FAERS Safety Report 8419060-6 (Version None)
Quarter: 2012Q2

REPORT INFORMATION
  Report Type: 
  Country: None (occurrence: None)
  Receive Date: 20120530
  Receipt Date: 20120518
  Transmission Date: 20120825
  Serious: Yes (Other)
  Sender: FDA-Public Use
  Company Number: AUR-APL-2012-02300

PATIENT
  Age: 25 Year
  Sex: Female
  Weight: 90 kg

DRUGS (3)
  1. RISPERIDONE [Suspect]
     Indication: PRODUCT USED FOR UNKNOWN INDICATION
  2. PALIPERIDONE [Suspect]
     Indication: PRODUCT USED FOR UNKNOWN INDICATION
     Dosage: 5 MG (150 MG, 1 IN 1 M), INTRAMUSCULAR
     Route: 030
     Dates: start: 20110701
  3. ABILIFY [Suspect]
     Indication: PRODUCT USED FOR UNKNOWN INDICATION
     Dosage: (10 MG), ORAL
     Route: 048
     Dates: start: 20120328

REACTIONS (7)
  - BODY MASS INDEX INCREASED [None]
  - PSYCHOTIC BEHAVIOUR [None]
  - MENSTRUATION IRREGULAR [None]
  - LACTATION DISORDER [None]
  - DEPRESSION [None]
  - MENTAL IMPAIRMENT [None]
  - HYPERPROLACTINAEMIA [None]
